FAERS Safety Report 7291012-1 (Version None)
Quarter: 2011Q1

REPORT INFORMATION
  Report Type: 
  Country: None (occurrence: None)
  Receive Date: 20110214
  Receipt Date: 20110131
  Transmission Date: 20110831
  Serious: Yes (Other)
  Sender: FDA-Public Use
  Company Number: PHHY2011BR08275

PATIENT
  Sex: Female

DRUGS (1)
  1. CAPTOPRIL [Suspect]
     Dosage: 50 MG, UNK
     Route: 048
     Dates: end: 20110128

REACTIONS (3)
  - DIARRHOEA [None]
  - DIABETES MELLITUS [None]
  - HYPERTENSION [None]
